FAERS Safety Report 9495481 (Version 2)
Quarter: 2014Q2

REPORT INFORMATION
  Report Type: Spontaneous
  Country: US (occurrence: US)
  Receive Date: 20130903
  Receipt Date: 20140519
  Transmission Date: 20141212
  Serious: Yes (Other)
  Sender: FDA-Public Use
  Company Number: US-BAYER-2013-105164

PATIENT
  Age: 29 Year
  Sex: Female
  Weight: 63.95 kg

DRUGS (4)
  1. MIRENA [Suspect]
     Indication: CONTRACEPTION
     Dosage: 20 MCG/24HR, CONT
     Route: 015
     Dates: start: 20071030, end: 20100203
  2. MIRENA [Suspect]
     Indication: MENORRHAGIA
  3. PRENATAL VITAMINS [Concomitant]
  4. IBUPROFEN [Concomitant]

REACTIONS (12)
  - Uterine perforation [None]
  - Medical device pain [None]
  - Injury [None]
  - Pain [None]
  - Dysmenorrhoea [None]
  - Menorrhagia [None]
  - Infection [None]
  - Device dislocation [None]
  - Device issue [None]
  - Emotional distress [None]
  - Depression [None]
  - Anxiety [None]
